FAERS Safety Report 15450827 (Version 1)
Quarter: 2018Q3

REPORT INFORMATION
  Report Type: Spontaneous
  Country: US (occurrence: US)
  Receive Date: 20180926
  Receipt Date: 20180926
  Transmission Date: 20181010
  Serious: Yes (Hospitalization)
  Sender: FDA-Public Use
  Company Number: None

PATIENT
  Age: 50 Year
  Sex: Female

DRUGS (9)
  1. MITREX [Concomitant]
     Active Substance: UNSPECIFIED INGREDIENT
  2. PREEDNIS [Concomitant]
  3. VITAMIN B12 [Concomitant]
     Active Substance: CYANOCOBALAMIN
  4. ENBREL [Suspect]
     Active Substance: ETANERCEPT
     Indication: ANKYLOSING SPONDYLITIS
     Route: 058
     Dates: start: 20180117
  5. EXCEDRIN [Concomitant]
     Active Substance: ACETAMINOPHEN\ASPIRIN\CAFFEINE
  6. FLURBIPROFEN. [Concomitant]
     Active Substance: FLURBIPROFEN
  7. SULFASAL [Concomitant]
     Active Substance: SULFASALAZINE
  8. D [Concomitant]
  9. LEUCOVER [Concomitant]

REACTIONS (2)
  - Hospitalisation [None]
  - Drug dose omission [None]
